FAERS Safety Report 9476076 (Version 1)
Quarter: 2013Q3

REPORT INFORMATION
  Report Type: Report from Study
  Country: RU (occurrence: RU)
  Receive Date: 20130826
  Receipt Date: 20130826
  Transmission Date: 20140515
  Serious: Yes (Death)
  Sender: FDA-Public Use
  Company Number: RU-ROCHE-1265936

PATIENT
  Sex: Female

DRUGS (6)
  1. RITUXIMAB [Suspect]
     Indication: POLYMYOSITIS
     Dosage: 4 PATIENTS 2 G PER COURSE AND 6 PATIENTS 1 G PER COURSE
     Route: 042
  2. RITUXIMAB [Suspect]
     Indication: DERMATOMYOSITIS
  3. MYCOPHENOLATE MOFETIL [Suspect]
     Indication: POLYMYOSITIS
     Route: 065
  4. MYCOPHENOLATE MOFETIL [Suspect]
     Indication: DERMATOMYOSITIS
  5. CYCLOPHOSPHAMIDE [Concomitant]
     Dosage: 600-200 MG/MONTH
     Route: 065
  6. IMMUNOGLOBULIN [Concomitant]
     Dosage: 10-12.5 G
     Route: 065

REACTIONS (2)
  - Urosepsis [Fatal]
  - Disease progression [Fatal]
